FAERS Safety Report 16904971 (Version 1)
Quarter: 2019Q4

REPORT INFORMATION
  Report Type: Report from Study
  Country: US (occurrence: US)
  Receive Date: 20191010
  Receipt Date: 20191010
  Transmission Date: 20200122
  Serious: Yes (Hospitalization)
  Sender: FDA-Public Use
  Company Number: US-EISAI MEDICAL RESEARCH-EC-2019-062542

PATIENT
  Age: 60 Year
  Sex: Male
  Weight: 72.72 kg

DRUGS (23)
  1. LENVIMA [Suspect]
     Active Substance: LENVATINIB
     Indication: METASTASES TO LUNG
  2. PROTONIX [Concomitant]
     Active Substance: PANTOPRAZOLE SODIUM
  3. PROBIOTIC [Concomitant]
     Active Substance: PROBIOTICS NOS
  4. VITAMIN C [Concomitant]
     Active Substance: ASCORBIC ACID
  5. AMOXICILLIN. [Concomitant]
     Active Substance: AMOXICILLIN
  6. ANTIOXIDANT FORMULA [Concomitant]
  7. SENNA-S [Concomitant]
     Active Substance: DOCUSATE SODIUM\SENNOSIDES
  8. VITAMIN B12 [Concomitant]
     Active Substance: CYANOCOBALAMIN
  9. TACROLIMUS. [Concomitant]
     Active Substance: TACROLIMUS
  10. ASPIRIN. [Concomitant]
     Active Substance: ASPIRIN
  11. VITAMIN D3 [Concomitant]
     Active Substance: CHOLECALCIFEROL
  12. OMEGA-3 ACID ETHYL EST [Concomitant]
  13. IRON [Concomitant]
     Active Substance: IRON
  14. MAG-OX [Concomitant]
     Active Substance: MAGNESIUM OXIDE
  15. SULFAMETHOXAZOLE-TRIMETHOPRIM [Concomitant]
     Active Substance: SULFAMETHOXAZOLE\TRIMETHOPRIM
  16. LENVIMA [Suspect]
     Active Substance: LENVATINIB
     Indication: HEPATOCELLULAR CARCINOMA
     Route: 048
     Dates: start: 20190913
  17. TURMERIC [Concomitant]
     Active Substance: HERBALS\TURMERIC
  18. FLUOROURACIL. [Concomitant]
     Active Substance: FLUOROURACIL
  19. COLACE [Concomitant]
     Active Substance: DOCUSATE SODIUM
  20. URSODIOL. [Concomitant]
     Active Substance: URSODIOL
  21. MIRTAZAPINE. [Concomitant]
     Active Substance: MIRTAZAPINE
  22. VITAMIN E [Concomitant]
     Active Substance: .ALPHA.-TOCOPHEROL
  23. AMLODIPINE [Concomitant]
     Active Substance: AMLODIPINE BESYLATE

REACTIONS (3)
  - Blood pressure increased [Recovering/Resolving]
  - Hepatic enzyme increased [Recovering/Resolving]
  - Blood bilirubin increased [Recovering/Resolving]

NARRATIVE: CASE EVENT DATE: 20190919
